FAERS Safety Report 8659935 (Version 3)
Quarter: 2012Q4

REPORT INFORMATION
  Report Type: Report from Study
  Country: FR (occurrence: FR)
  Receive Date: 20120711
  Receipt Date: 20120829
  Transmission Date: 20130627
  Serious: Yes (Death, Hospitalization)
  Sender: FDA-Public Use
  Company Number: PHHY2012FR058998

PATIENT
  Age: 72 Year
  Sex: Male
  Weight: 98 kg

DRUGS (2)
  1. EVEROLIMUS [Suspect]
     Indication: RENAL CANCER METASTATIC
     Dosage: 10 mg, daily
     Route: 048
     Dates: start: 20110207, end: 20110320
  2. OXYCONTIN [Concomitant]
     Indication: PAIN
     Dates: start: 20110321

REACTIONS (3)
  - Mucosal inflammation [Not Recovered/Not Resolved]
  - Cardio-respiratory arrest [Fatal]
  - Stomatitis [Unknown]
